FAERS Safety Report 9456027 (Version 1)
Quarter: 2013Q3

REPORT INFORMATION
  Report Type: Spontaneous
  Country: IT (occurrence: None)
  Receive Date: 20130808
  Receipt Date: 20130808
  Transmission Date: 20140515
  Serious: Yes (Life-Threatening, Hospitalization)
  Sender: FDA-Public Use
  Company Number: IPC201307-000302

PATIENT
  Age: 31 Year
  Sex: Male

DRUGS (5)
  1. ALLOPURINOL [Suspect]
     Indication: HYPERURICAEMIA
  2. ISONIAZID (ISOINIAZID) [Concomitant]
  3. ETHAMBUTOL (ETHAMBUTOL HYDROCHLORIDE) (ETHAMBUTOL HYDROCHLORIDE) [Concomitant]
  4. PYRAZINAMIDE (PYRAZINAMIDE) (PYRAZINAMIDE) [Concomitant]
  5. RIFAMPICIN (RIFAMPICIN) (RIFAMPICIN) [Concomitant]

REACTIONS (5)
  - Drug reaction with eosinophilia and systemic symptoms [None]
  - Hepatitis cholestatic [None]
  - Vasculitis [None]
  - Coma [None]
  - Nervous system disorder [None]
